FAERS Safety Report 10256962 (Version 1)
Quarter: 2014Q2

REPORT INFORMATION
  Report Type: Spontaneous
  Country: US (occurrence: US)
  Receive Date: 20140625
  Receipt Date: 20140625
  Transmission Date: 20141212
  Serious: No
  Sender: FDA-Public Use
  Company Number: US-AMGEN INC.-USASP2014046709

PATIENT
  Age: 68 Year
  Sex: Female

DRUGS (3)
  1. ENBREL [Suspect]
     Indication: RHEUMATOID ARTHRITIS
     Dosage: 50 MG, QWK
     Route: 065
     Dates: start: 20130821
  2. CORTISONE [Concomitant]
     Dosage: UNK
  3. PLAQUENIL                          /00072603/ [Concomitant]
     Dosage: UNK

REACTIONS (1)
  - Candida infection [Not Recovered/Not Resolved]
